FAERS Safety Report 6581671-0 (Version None)
Quarter: 2010Q1

REPORT INFORMATION
  Report Type: 
  Country: None (occurrence: None)
  Receive Date: 20100215
  Receipt Date: 20100201
  Transmission Date: 20100710
  Serious: Yes (Other)
  Sender: FDA-Public Use
  Company Number: IR-MYLANLABS-2010S1001545

PATIENT
  Age: 49 Year
  Sex: Male

DRUGS (9)
  1. CYCLOSPORINE [Suspect]
     Indication: PROPHYLAXIS AGAINST TRANSPLANT REJECTION
  2. MYCOPHENOLATE MOFETIL [Suspect]
     Indication: PROPHYLAXIS AGAINST TRANSPLANT REJECTION
  3. PREDNISOLONE [Suspect]
     Indication: PROPHYLAXIS AGAINST TRANSPLANT REJECTION
  4. PREDNISOLONE [Suspect]
  5. ACYCLOVIR [Concomitant]
     Indication: HERPES ZOSTER
     Route: 042
  6. GANCICLOVIR [Concomitant]
     Indication: CYTOMEGALOVIRUS INFECTION
     Route: 042
  7. PODOPHYLLIN /01650601/ [Concomitant]
     Indication: ANOGENITAL WARTS
     Route: 061
  8. BENZOIN TINCTURE [Concomitant]
     Indication: ANOGENITAL WARTS
     Route: 061
  9. METHYLPREDNISOLONE [Concomitant]
     Indication: TRANSPLANT REJECTION
     Route: 042

REACTIONS (1)
  - OSTEOMA [None]
